FAERS Safety Report 15900026 (Version 1)
Quarter: 2019Q1

REPORT INFORMATION
  Report Type: Spontaneous
  Country: US (occurrence: US)
  Receive Date: 20190201
  Receipt Date: 20190201
  Transmission Date: 20190417
  Serious: No
  Sender: FDA-Public Use
  Company Number: US-GLAXOSMITHKLINE-US2019013161

PATIENT
  Age: 69 Year
  Sex: Female

DRUGS (2)
  1. TUMS ULTRA [Suspect]
     Active Substance: CALCIUM CARBONATE
     Indication: GASTROOESOPHAGEAL REFLUX DISEASE
     Dosage: I TAKE LIKE 2-3 AT A TIME
  2. ZINETAC [Suspect]
     Active Substance: RANITIDINE HYDROCHLORIDE
     Indication: PRODUCT USED FOR UNKNOWN INDICATION

REACTIONS (2)
  - Contraindicated product administered [Unknown]
  - Product use in unapproved indication [Unknown]
